FAERS Safety Report 9838964 (Version 4)
Quarter: 2014Q1

REPORT INFORMATION
  Report Type: Spontaneous
  Country: US (occurrence: US)
  Receive Date: 20140123
  Receipt Date: 20140318
  Transmission Date: 20141002
  Serious: Yes (Death, Hospitalization, Disabling, Other)
  Sender: FDA-Public Use
  Company Number: US-009507513-1205USA04983

PATIENT
  Sex: Female

DRUGS (6)
  1. FOSAMAX [Suspect]
     Indication: OSTEOPOROSIS
     Dosage: 70 MG, QW
     Route: 048
     Dates: end: 200705
  2. ASCORBIC ACID [Concomitant]
     Dosage: UNK
     Route: 048
     Dates: start: 1979, end: 201203
  3. CALCIUM (UNSPECIFIED) (+) VITAMIN D (UNSPECIFIED) [Concomitant]
     Dosage: UNK
     Route: 048
     Dates: start: 1979, end: 201203
  4. METHOTREXATE [Concomitant]
     Indication: RHEUMATOID ARTHRITIS
  5. ASPIRIN [Concomitant]
     Indication: RHEUMATOID ARTHRITIS
  6. PLAQUENIL [Concomitant]
     Indication: RHEUMATOID ARTHRITIS

REACTIONS (24)
  - Femur fracture [Recovered/Resolved]
  - Multiple fractures [Not Recovered/Not Resolved]
  - Low turnover osteopathy [Not Recovered/Not Resolved]
  - Intramedullary rod insertion [Unknown]
  - Respiratory failure [Unknown]
  - Cholecystectomy [Unknown]
  - Cardiopulmonary failure [Fatal]
  - Non-Hodgkin^s lymphoma [Unknown]
  - Spinal fusion surgery [Unknown]
  - Surgery [Unknown]
  - Pain in extremity [Unknown]
  - Impaired healing [Unknown]
  - Chronic obstructive pulmonary disease [Unknown]
  - Herpes zoster [Unknown]
  - Hypercholesterolaemia [Unknown]
  - Thyroid disorder [Unknown]
  - Toe operation [Unknown]
  - Wrist fracture [Unknown]
  - Cardiac murmur [Unknown]
  - Ecchymosis [Unknown]
  - Device breakage [Unknown]
  - Pubis fracture [Recovered/Resolved]
  - Vertebral foraminal stenosis [Unknown]
  - Spondylolisthesis [Unknown]
